FAERS Safety Report 25994604 (Version 1)
Quarter: 2025Q4

REPORT INFORMATION
  Report Type: Spontaneous
  Country: EU (occurrence: EU)
  Receive Date: 20251104
  Receipt Date: 20251104
  Transmission Date: 20260118
  Serious: Yes (Life-Threatening, Hospitalization, Other)
  Sender: Onesource Specialty Pharma
  Company Number: EU-STRIDES ARCOLAB LIMITED-2025OS001109

PATIENT
  Age: 3 Year
  Sex: Female

DRUGS (4)
  1. MIDAZOLAM [Suspect]
     Active Substance: MIDAZOLAM
     Indication: Product used for unknown indication
     Dosage: UNK
     Route: 065
  2. ZOLPIDEM [Suspect]
     Active Substance: ZOLPIDEM TARTRATE
     Indication: Product used for unknown indication
     Dosage: UNK
     Route: 065
  3. THIOPENTAL [Concomitant]
     Active Substance: THIOPENTAL
     Indication: Product used for unknown indication
     Dosage: UNK
     Route: 065
  4. ACETAMINOPHEN [Concomitant]
     Active Substance: ACETAMINOPHEN
     Indication: Product used for unknown indication
     Dosage: UNK
     Route: 065

REACTIONS (16)
  - Circulatory collapse [None]
  - Dyspnoea [Unknown]
  - Loss of consciousness [Unknown]
  - Drug level above therapeutic [Unknown]
  - Hypotonia [None]
  - Cyanosis [None]
  - Intentional product misuse to child [Unknown]
  - Somnolence [Unknown]
  - Abdominal pain [Unknown]
  - Tachycardia [None]
  - Cardiac arrest [None]
  - Hypoxia [Unknown]
  - Toxicity to various agents [Unknown]
  - Seizure [None]
  - Hypotension [Unknown]
  - Vomiting [None]
